FAERS Safety Report 17643612 (Version 1)
Quarter: 2020Q2

REPORT INFORMATION
  Report Type: Spontaneous
  Country: US (occurrence: US)
  Receive Date: 20200407
  Receipt Date: 20200407
  Transmission Date: 20200713
  Serious: Yes (Hospitalization)
  Sender: FDA-Public Use
  Company Number: None

PATIENT
  Age: 79 Year
  Sex: Male

DRUGS (14)
  1. FUROSEMIDE. [Concomitant]
     Active Substance: FUROSEMIDE
  2. SILDENAFIL 20MG TAB [Suspect]
     Active Substance: SILDENAFIL
     Indication: PULMONARY ARTERIAL HYPERTENSION
     Route: 048
     Dates: start: 20180304
  3. AMIODARONE [Concomitant]
     Active Substance: AMIODARONE
  4. CARVEDILOL. [Concomitant]
     Active Substance: CARVEDILOL
  5. ALENDRONATE [Suspect]
     Active Substance: ALENDRONATE SODIUM
  6. MEMANTINE. [Concomitant]
     Active Substance: MEMANTINE
  7. MONTELUKAST [Concomitant]
     Active Substance: MONTELUKAST SODIUM
  8. CANDESARTAN. [Concomitant]
     Active Substance: CANDESARTAN
  9. CLOPIDOGREL [Concomitant]
     Active Substance: CLOPIDOGREL BISULFATE
  10. DONEPEZIL. [Concomitant]
     Active Substance: DONEPEZIL
  11. WIXELA INHUB [Concomitant]
     Active Substance: FLUTICASONE PROPIONATE\SALMETEROL XINAFOATE
  12. SPIRONOLACT [Concomitant]
     Active Substance: SPIRONOLACTONE
  13. XARELTO [Concomitant]
     Active Substance: RIVAROXABAN
  14. CEPHALEXIN. [Concomitant]
     Active Substance: CEPHALEXIN

REACTIONS (2)
  - Therapy interrupted [None]
  - Surgery [None]

NARRATIVE: CASE EVENT DATE: 202002
